FAERS Safety Report 16886840 (Version 1)
Quarter: 2019Q4

REPORT INFORMATION
  Report Type: Report from Study
  Country: US (occurrence: US)
  Receive Date: 20191004
  Receipt Date: 20191004
  Transmission Date: 20200122
  Serious: Yes (Other)
  Sender: FDA-Public Use
  Company Number: US-ASTRAZENECA-2019SF16361

PATIENT
  Age: 26941 Day
  Sex: Female
  Weight: 65.8 kg

DRUGS (12)
  1. FLUTICASONE. [Concomitant]
     Active Substance: FLUTICASONE
  2. VALSARTAN. [Concomitant]
     Active Substance: VALSARTAN
  3. ANASTROZOLE. [Suspect]
     Active Substance: ANASTROZOLE
     Route: 048
  4. MELOXICAM. [Concomitant]
     Active Substance: MELOXICAM
  5. PRED FORTE [Concomitant]
     Active Substance: PREDNISOLONE ACETATE
  6. AZELASTINE. [Concomitant]
     Active Substance: AZELASTINE HYDROCHLORIDE
  7. BIMATOPROST. [Concomitant]
     Active Substance: BIMATOPROST
  8. TRIAMCINOLONE [Concomitant]
     Active Substance: TRIAMCINOLONE
  9. ATORVASTATIN [Concomitant]
     Active Substance: ATORVASTATIN
  10. TAGRISSO [Suspect]
     Active Substance: OSIMERTINIB
     Indication: LUNG NEOPLASM MALIGNANT
     Route: 048
     Dates: start: 20190718, end: 20190912
  11. VITAMIN D [Concomitant]
     Active Substance: VITAMIN D NOS
  12. BUPROPION. [Concomitant]
     Active Substance: BUPROPION

REACTIONS (4)
  - Stomatitis [Recovering/Resolving]
  - Heart rate increased [Recovering/Resolving]
  - Dyspnoea [Recovering/Resolving]
  - Diarrhoea [Unknown]

NARRATIVE: CASE EVENT DATE: 20190724
